FAERS Safety Report 17813536 (Version 1)
Quarter: 2020Q2

REPORT INFORMATION
  Report Type: Report from Study
  Country: CO (occurrence: CO)
  Receive Date: 20200521
  Receipt Date: 20200521
  Transmission Date: 20200714
  Serious: Yes (Other)
  Sender: FDA-Public Use
  Company Number: NVSC2020CO024022

PATIENT
  Sex: Female

DRUGS (1)
  1. JADENU [Suspect]
     Active Substance: DEFERASIROX
     Indication: THALASSAEMIA
     Dosage: 360 MG, TID
     Route: 048

REACTIONS (13)
  - Pain in extremity [Unknown]
  - Discomfort [Unknown]
  - Asthenia [Unknown]
  - Arthralgia [Unknown]
  - Dyspnoea [Unknown]
  - Headache [Unknown]
  - Movement disorder [Unknown]
  - Haemorrhage [Unknown]
  - Feeling abnormal [Unknown]
  - Inappropriate schedule of product administration [Unknown]
  - Somnolence [Unknown]
  - Fatigue [Unknown]
  - Pain [Unknown]
